FAERS Safety Report 6928656-X (Version None)
Quarter: 2010Q3

REPORT INFORMATION
  Report Type: 
  Country: None (occurrence: None)
  Receive Date: 20100817
  Receipt Date: 20100806
  Transmission Date: 20110219
  Serious: Yes (Hospitalization)
  Sender: FDA-Public Use
  Company Number: A0839240A

PATIENT
  Age: 46 Year
  Sex: Female
  Weight: 132.3 kg

DRUGS (3)
  1. AVANDIA [Suspect]
     Indication: DIABETES MELLITUS
     Dosage: 4MG TWICE PER DAY
     Route: 048
     Dates: start: 20000711, end: 20060518
  2. AVANDAMET [Suspect]
     Indication: DIABETES MELLITUS
     Dosage: 1TAB TWICE PER DAY
     Route: 048
     Dates: start: 20050101, end: 20050101
  3. INSULIN [Concomitant]

REACTIONS (3)
  - CARDIAC FAILURE CONGESTIVE [None]
  - COR PULMONALE [None]
  - PULMONARY HYPERTENSION [None]
